FAERS Safety Report 11762447 (Version 2)
Quarter: 2015Q4

REPORT INFORMATION
  Report Type: Spontaneous
  Country: US (occurrence: US)
  Receive Date: 20151120
  Receipt Date: 20151130
  Transmission Date: 20160304
  Serious: Yes (Other)
  Sender: FDA-Public Use
  Company Number: PHEH2015US024125

PATIENT
  Sex: Female
  Weight: 60.32 kg

DRUGS (17)
  1. LEXAPRO [Suspect]
     Active Substance: ESCITALOPRAM OXALATE
     Indication: ANXIETY
     Dosage: 20 MG, QD
     Route: 048
  2. LEXAPRO [Suspect]
     Active Substance: ESCITALOPRAM OXALATE
     Indication: DEPRESSION
     Dosage: 20 MG, (0.5 TABLET) FOR 7 DAYS
     Route: 048
  3. GILENYA [Suspect]
     Active Substance: FINGOLIMOD HYDROCHLORIDE
     Indication: RELAPSING-REMITTING MULTIPLE SCLEROSIS
     Dosage: 0.5 MG, QOD
     Route: 048
  4. TIZANIDINE HCL [Concomitant]
     Active Substance: TIZANIDINE HYDROCHLORIDE
     Indication: PRODUCT USED FOR UNKNOWN INDICATION
     Dosage: 4 MG, QD (AT BED)
     Route: 048
  5. TAMSULOSIN HCL [Concomitant]
     Active Substance: TAMSULOSIN
     Indication: PRODUCT USED FOR UNKNOWN INDICATION
     Dosage: 0.4 MG, (1 DAILY AS NEEDED)
     Route: 065
  6. NUEDEXTA [Suspect]
     Active Substance: DEXTROMETHORPHAN HYDROBROMIDE\QUINIDINE SULFATE
     Indication: DEPRESSION
     Route: 065
  7. CRESTOR [Concomitant]
     Active Substance: ROSUVASTATIN CALCIUM
     Indication: PRODUCT USED FOR UNKNOWN INDICATION
     Dosage: 10 MG, (AT BED TIME)
     Route: 048
  8. LEVETIRACETAM. [Concomitant]
     Active Substance: LEVETIRACETAM
     Indication: PRODUCT USED FOR UNKNOWN INDICATION
     Dosage: 500 MG, (1 IN THE AM AND 2 IN QHS)
     Route: 048
  9. COPAXONE [Concomitant]
     Active Substance: GLATIRAMER ACETATE
     Indication: PRODUCT USED FOR UNKNOWN INDICATION
     Route: 065
  10. NUEDEXTA [Suspect]
     Active Substance: DEXTROMETHORPHAN HYDROBROMIDE\QUINIDINE SULFATE
     Indication: ANXIETY
  11. ALPRAZOLAM. [Concomitant]
     Active Substance: ALPRAZOLAM
     Indication: PRODUCT USED FOR UNKNOWN INDICATION
     Dosage: 0.5 MG, TID
     Route: 048
  12. ESCITALOPRAM OXALATE. [Concomitant]
     Active Substance: ESCITALOPRAM OXALATE
     Indication: PRODUCT USED FOR UNKNOWN INDICATION
     Dosage: 20 MG, UNK
     Route: 065
  13. BUPROPION HCL [Concomitant]
     Active Substance: BUPROPION HYDROCHLORIDE
     Indication: PRODUCT USED FOR UNKNOWN INDICATION
     Dosage: 100 MG, (IN MORNING)
     Route: 048
  14. TYSABRI [Concomitant]
     Active Substance: NATALIZUMAB
     Indication: MULTIPLE SCLEROSIS
     Route: 065
  15. NEXIUM [Concomitant]
     Active Substance: ESOMEPRAZOLE MAGNESIUM
     Indication: PRODUCT USED FOR UNKNOWN INDICATION
     Dosage: 40 MG, QD
     Route: 048
  16. CALCIUM + VIT D [Concomitant]
     Active Substance: CALCIUM\VITAMIN D
     Indication: PRODUCT USED FOR UNKNOWN INDICATION
     Dosage: 500 MG, UNK
     Route: 065
  17. CARBAMAZEPINE. [Concomitant]
     Active Substance: CARBAMAZEPINE
     Indication: PRURITUS
     Dosage: 200 MG, (1 TABLET AT BED TIME)
     Route: 065

REACTIONS (34)
  - Macular oedema [Unknown]
  - Fatigue [Recovered/Resolved]
  - Multiple sclerosis relapse [Unknown]
  - Cognitive disorder [Unknown]
  - Middle insomnia [Unknown]
  - Dizziness [Unknown]
  - Dry eye [Recovered/Resolved]
  - Stress [Not Recovered/Not Resolved]
  - CD8 lymphocytes decreased [Unknown]
  - Coordination abnormal [Unknown]
  - Cervical radiculopathy [Unknown]
  - Apnoea [Unknown]
  - Restlessness [Unknown]
  - Muscle spasms [Unknown]
  - White blood cell count decreased [Unknown]
  - Neck pain [Unknown]
  - Constipation [Unknown]
  - Vitamin D deficiency [Unknown]
  - Disturbance in attention [Unknown]
  - Pain [Unknown]
  - Asthenopia [Recovered/Resolved]
  - Herpes zoster [Unknown]
  - Migraine [Recovered/Resolved]
  - Anxiety [Not Recovered/Not Resolved]
  - Vitamin B12 deficiency [Unknown]
  - CD4 lymphocytes decreased [Unknown]
  - Contusion [Unknown]
  - Prescribed underdose [Unknown]
  - Snoring [Unknown]
  - Neuralgia [Unknown]
  - Malaise [Unknown]
  - Depression [Not Recovered/Not Resolved]
  - Vision blurred [Unknown]
  - Headache [Unknown]
